FAERS Safety Report 11310949 (Version 2)
Quarter: 2015Q3

REPORT INFORMATION
  Report Type: Spontaneous
  Country: US (occurrence: US)
  Receive Date: 20150726
  Receipt Date: 20150807
  Transmission Date: 20151125
  Serious: Yes (Death)
  Sender: FDA-Public Use
  Company Number: US-ROCHE-1611944

PATIENT
  Sex: Male

DRUGS (1)
  1. VALCYTE [Suspect]
     Active Substance: VALGANCICLOVIR HYDROCHLORIDE
     Indication: ORGAN TRANSPLANT
     Route: 048
     Dates: start: 20140418

REACTIONS (1)
  - Transplant rejection [Fatal]
